FAERS Safety Report 7220885-3 (Version None)
Quarter: 2011Q1

REPORT INFORMATION
  Report Type: 
  Country: None (occurrence: None)
  Receive Date: 20110112
  Receipt Date: 20110111
  Transmission Date: 20110831
  Serious: Yes (Other)
  Sender: FDA-Public Use
  Company Number: US-PFIZER INC-2010181445

PATIENT
  Sex: Female
  Weight: 65.8 kg

DRUGS (4)
  1. TRIAMTERENE AND HYDROCHLOROTHIAZID ^HARRIS^ [Concomitant]
     Indication: HYPERTENSION
     Dosage: 37.5/25 MG, UNK
  2. EFFEXOR XR [Suspect]
     Indication: MENOPAUSAL SYMPTOMS
     Dosage: 75 MG, 1X/DAY
     Route: 048
     Dates: start: 20031001
  3. MULTI-VITAMINS [Concomitant]
     Dosage: UNK
  4. CALCIUM [Concomitant]
     Dosage: UNK

REACTIONS (2)
  - ALOPECIA [None]
  - IMMUNODEFICIENCY [None]
